FAERS Safety Report 7720724-8 (Version None)
Quarter: 2011Q3

REPORT INFORMATION
  Report Type: 
  Country: None (occurrence: None)
  Receive Date: 20110831
  Receipt Date: 20110816
  Transmission Date: 20111222
  Serious: Yes (Other)
  Sender: FDA-Public Use
  Company Number: TR-TYCO HEALTHCARE/MALLINCKRODT-T201101626

PATIENT
  Age: 21 Year
  Sex: Female

DRUGS (6)
  1. EXALGO [Suspect]
     Indication: PAIN
     Dosage: 8 MG, QD
     Route: 048
     Dates: start: 20110101, end: 20110101
  2. LYRICA [Concomitant]
     Indication: PAIN
     Dosage: 150 MG, 2 IN 1 DAY
  3. TRAMADOL HCL [Concomitant]
     Indication: PAIN
     Dosage: 100 MG, 3 IN 1 DAY
  4. DURAGESIC-100 [Suspect]
     Indication: PAIN
     Dosage: 100 UG/HR EVERY FOUR DAYS
     Route: 062
  5. EXALGO [Suspect]
     Dosage: 16 MG, QD
     Route: 048
     Dates: start: 20110101
  6. ACTIQ [Suspect]
     Indication: PAIN
     Dosage: UNK
     Dates: start: 20110101, end: 20110101

REACTIONS (8)
  - SOMNOLENCE [None]
  - INAPPROPRIATE SCHEDULE OF DRUG ADMINISTRATION [None]
  - SWELLING FACE [None]
  - NAUSEA [None]
  - HALLUCINATION, VISUAL [None]
  - EYE SWELLING [None]
  - HALLUCINATION, AUDITORY [None]
  - SKIN EXFOLIATION [None]
